FAERS Safety Report 6056769-6 (Version None)
Quarter: 2009Q1

REPORT INFORMATION
  Report Type: 
  Country: None (occurrence: None)
  Receive Date: 20090126
  Receipt Date: 20090107
  Transmission Date: 20090719
  Serious: Yes (Death)
  Sender: FDA-Public Use
  Company Number: B0553740A

PATIENT
  Age: 29 Year
  Sex: Male

DRUGS (6)
  1. PROPRANOLOL HCL [Suspect]
     Dosage: ORAL
     Route: 048
  2. ASPIRIN [Suspect]
  3. METOPROLOL SUCCINATE [Suspect]
  4. LISINOPRIL [Suspect]
  5. MECLIZINE [Concomitant]
  6. PROMETHAZINE [Suspect]

REACTIONS (1)
  - COMPLETED SUICIDE [None]
